FAERS Safety Report 4636053-5 (Version None)
Quarter: 2005Q2

REPORT INFORMATION
  Report Type: 
  Country: None (occurrence: None)
  Receive Date: 20050331
  Receipt Date: 20040513
  Transmission Date: 20051028
  Serious: Yes (Other)
  Sender: FDA-Public Use
  Company Number: 200412395BCC

PATIENT
  Age: 68 Year
  Sex: Male
  Weight: 81.6475 kg

DRUGS (7)
  1. ALEVE [Suspect]
     Indication: PHLEBITIS
     Dosage: 440 MG, BID, ORAL
     Route: 048
     Dates: start: 20040506, end: 20040512
  2. PROSCAR [Concomitant]
  3. SYNTHROID [Concomitant]
  4. COUMADIN [Concomitant]
  5. PROTONIX [Concomitant]
  6. COLACE [Concomitant]
  7. FLOMAX [Concomitant]

REACTIONS (2)
  - CONSTIPATION [None]
  - HAEMATOCHEZIA [None]
